FAERS Safety Report 6240123-8 (Version None)
Quarter: 2009Q2

REPORT INFORMATION
  Report Type: 
  Country: None (occurrence: None)
  Receive Date: 20090618
  Receipt Date: 20090618
  Transmission Date: 20091009
  Serious: Yes (Other)
  Sender: FDA-Public Use
  Company Number: None

PATIENT
  Age: 24 Year
  Sex: Male
  Weight: 95.2554 kg

DRUGS (1)
  1. CYMBALTA [Suspect]
     Dates: start: 20090501, end: 20090601

REACTIONS (4)
  - AGITATION [None]
  - ANXIETY [None]
  - FEELING ABNORMAL [None]
  - SOMNOLENCE [None]
